FAERS Safety Report 18729687 (Version 1)
Quarter: 2021Q1

REPORT INFORMATION
  Report Type: Spontaneous
  Country: US (occurrence: US)
  Receive Date: 20210112
  Receipt Date: 20210112
  Transmission Date: 20210419
  Serious: Yes (Death)
  Sender: FDA-Public Use
  Company Number: None

PATIENT
  Age: 47 Year
  Sex: Male
  Weight: 110 kg

DRUGS (1)
  1. BAMLANIVIMAB. [Suspect]
     Active Substance: BAMLANIVIMAB
     Indication: COVID-19
     Dosage: ?          OTHER FREQUENCY:ONCE;?
     Route: 042

REACTIONS (5)
  - Cardiac arrest [None]
  - Multiple organ dysfunction syndrome [None]
  - Respiratory failure [None]
  - General physical health deterioration [None]
  - Lactic acidosis [None]

NARRATIVE: CASE EVENT DATE: 20210106
